FAERS Safety Report 4996426-8 (Version None)
Quarter: 2006Q2

REPORT INFORMATION
  Report Type: 
  Country: None (occurrence: None)
  Receive Date: 20060509
  Receipt Date: 20060502
  Transmission Date: 20061013
  Serious: Yes (Life-Threatening)
  Sender: FDA-Public Use
  Company Number: FR-AVENTIS-200611652FR

PATIENT
  Age: 84 Year
  Sex: Male

DRUGS (13)
  1. TARGOCID [Suspect]
     Indication: ARTHRITIS BACTERIAL
     Route: 042
     Dates: start: 20060221, end: 20060309
  2. TARGOCID [Suspect]
     Indication: DEVICE RELATED INFECTION
     Route: 042
     Dates: start: 20060221, end: 20060309
  3. TARGOCID [Suspect]
     Indication: STAPHYLOCOCCAL INFECTION
     Route: 042
     Dates: start: 20060221, end: 20060309
  4. TARGOCID [Suspect]
     Route: 042
     Dates: start: 20060313
  5. RIFADIN [Suspect]
     Indication: ARTHRITIS BACTERIAL
     Route: 042
     Dates: start: 20060221, end: 20060309
  6. RIFADIN [Suspect]
     Indication: DEVICE RELATED INFECTION
     Route: 042
     Dates: start: 20060221, end: 20060309
  7. RIFADIN [Suspect]
     Indication: STAPHYLOCOCCAL INFECTION
     Route: 042
     Dates: start: 20060221, end: 20060309
  8. VANCOCIN HCL [Concomitant]
     Indication: ARTHRITIS BACTERIAL
     Route: 042
  9. VANCOCIN HCL [Concomitant]
     Indication: DEVICE RELATED INFECTION
     Route: 042
  10. VANCOCIN HCL [Concomitant]
     Indication: STAPHYLOCOCCAL INFECTION
     Route: 042
  11. GENTAMICIN [Concomitant]
     Indication: ARTHRITIS BACTERIAL
     Route: 042
  12. GENTAMICIN [Concomitant]
     Indication: DEVICE RELATED INFECTION
     Route: 042
  13. GENTAMICIN [Concomitant]
     Indication: STAPHYLOCOCCAL INFECTION
     Route: 042

REACTIONS (6)
  - ANAEMIA [None]
  - LEUKOPENIA [None]
  - OVERDOSE [None]
  - PANCYTOPENIA [None]
  - SUBDURAL HAEMATOMA [None]
  - THROMBOCYTOPENIA [None]
